FAERS Safety Report 13855221 (Version 5)
Quarter: 2017Q4

REPORT INFORMATION
  Report Type: Spontaneous
  Country: US (occurrence: US)
  Receive Date: 20170810
  Receipt Date: 20171211
  Transmission Date: 20180320
  Serious: Yes (Other)
  Sender: FDA-Public Use
  Company Number: US-AMGEN-USASP2017118058

PATIENT
  Age: 53 Year
  Sex: Female

DRUGS (3)
  1. ENBREL [Suspect]
     Active Substance: ETANERCEPT
     Indication: RHEUMATOID ARTHRITIS
     Dosage: 50 MG, QWK
     Route: 065
  2. ENBREL [Suspect]
     Active Substance: ETANERCEPT
     Dosage: UNK
     Route: 065
  3. ENBREL [Suspect]
     Active Substance: ETANERCEPT
     Dosage: 50 MG, QWK
     Route: 065

REACTIONS (17)
  - Incorrect disposal of product [Unknown]
  - Malaise [Unknown]
  - Wrong technique in product usage process [Unknown]
  - Rheumatoid arthritis [Not Recovered/Not Resolved]
  - Therapeutic response unexpected [Unknown]
  - Emotional distress [Unknown]
  - Accidental exposure to product [Unknown]
  - Multiple allergies [Unknown]
  - Systemic lupus erythematosus [Not Recovered/Not Resolved]
  - Product storage error [Unknown]
  - Off label use [Unknown]
  - Ear infection [Recovered/Resolved]
  - Drug dose omission [Unknown]
  - Urinary tract disorder [Unknown]
  - Headache [Not Recovered/Not Resolved]
  - Feeling abnormal [Unknown]
  - Sinusitis [Recovered/Resolved]
